FAERS Safety Report 5363285-3 (Version None)
Quarter: 2007Q2

REPORT INFORMATION
  Report Type: 
  Country: None (occurrence: None)
  Receive Date: 20070614
  Receipt Date: 20070611
  Transmission Date: 20071010
  Serious: Yes (Disabling)
  Sender: FDA-Public Use
  Company Number: 6028998

PATIENT
  Age: 1 Hour
  Sex: Male

DRUGS (3)
  1. LEVOTHYROXINE SODIUM [Suspect]
     Indication: DRUG EXPOSURE DURING PREGNANCY
     Dosage: 150 MCG (150 MCG, 1D) TRANSPLACENTAL
     Route: 064
  2. LODOZ (TABLET) (HYDROCHLOROTHIAZIDE, BISOPROLOL FUMARATE) [Suspect]
     Indication: DRUG EXPOSURE DURING PREGNANCY
     Dosage: 1 DOSAGE FORMS ( 1 DOSAGE FORMS, 1 D) TRANSPLACENTAL
     Route: 064
  3. COTAREG (TABLETS) (HYDROCHLOROTHIAZIDE, VALSARTAN) [Suspect]
     Indication: DRUG EXPOSURE DURING PREGNANCY
     Dosage: 1 DOSAGE FORMS (1 DOSAGE FORMS, 1 D) TRANSPLACENTAL
     Route: 064

REACTIONS (20)
  - CAESAREAN SECTION [None]
  - CARDIAC FAILURE [None]
  - CONGENITAL ANOMALY [None]
  - CONGENITAL HIP DEFORMITY [None]
  - CONGENITAL ORAL MALFORMATION [None]
  - DRUG EXPOSURE DURING PREGNANCY [None]
  - DYSMORPHISM [None]
  - HYPOTONIA NEONATAL [None]
  - KIDNEY ENLARGEMENT [None]
  - LIMB MALFORMATION [None]
  - MUSCULOSKELETAL STIFFNESS [None]
  - NEONATAL RESPIRATORY ACIDOSIS [None]
  - NEONATAL RESPIRATORY DISTRESS SYNDROME [None]
  - PERITONEAL DIALYSIS [None]
  - PNEUMOTHORAX [None]
  - PULMONARY HYPOPLASIA [None]
  - RENAL FAILURE NEONATAL [None]
  - SKIN DISORDER [None]
  - SKULL MALFORMATION [None]
  - SPINAL DISORDER [None]
